FAERS Safety Report 6408388-7 (Version None)
Quarter: 2009Q4

REPORT INFORMATION
  Report Type: 
  Country: None (occurrence: None)
  Receive Date: 20091019
  Receipt Date: 20060309
  Transmission Date: 20100525
  Serious: Yes (Hospitalization)
  Sender: FDA-Public Use
  Company Number: 2009009156

PATIENT
  Sex: Male

DRUGS (4)
  1. ACTIQ [Suspect]
     Indication: ARTHRALGIA
     Dosage: 1200 MCG, BU
     Route: 002
  2. ACTIQ [Suspect]
     Indication: SCIATICA
     Dosage: 1200 MCG, BU
     Route: 002
  3. ACTIQ [Suspect]
     Indication: SPINAL CORD INJURY
     Dosage: 1200 MCG, BU
     Route: 002
  4. DILAUDID [Concomitant]

REACTIONS (1)
  - HOSPITALISATION [None]
